FAERS Safety Report 12931300 (Version 1)
Quarter: 2016Q4

REPORT INFORMATION
  Report Type: Spontaneous
  Country: US (occurrence: US)
  Receive Date: 20161110
  Receipt Date: 20161110
  Transmission Date: 20170207
  Serious: No
  Sender: FDA-Public Use
  Company Number: US-JAZZ-2016-US-018252

PATIENT
  Sex: Male

DRUGS (12)
  1. PREDNISONE. [Concomitant]
     Active Substance: PREDNISONE
  2. GABAPENTIN. [Concomitant]
     Active Substance: GABAPENTIN
  3. PROZAC [Concomitant]
     Active Substance: FLUOXETINE HYDROCHLORIDE
  4. XYREM [Suspect]
     Active Substance: SODIUM OXYBATE
     Dosage: DOSE ADJUSTMENTS
     Route: 048
     Dates: start: 201504, end: 201504
  5. FLUOXETINE [Concomitant]
     Active Substance: FLUOXETINE HYDROCHLORIDE
  6. NABUMETONE. [Concomitant]
     Active Substance: NABUMETONE
  7. XYREM [Suspect]
     Active Substance: SODIUM OXYBATE
     Indication: NARCOLEPSY
     Dosage: 2.25 G, BID
     Route: 048
     Dates: start: 201503, end: 201504
  8. XYREM [Suspect]
     Active Substance: SODIUM OXYBATE
     Dosage: 4 G, BID (SOMETIMES TAKE 4GM AT BEDTIME AND 3.5GM FOR SECOND DOSE)
     Route: 048
     Dates: start: 201504
  9. KLONOPIN [Concomitant]
     Active Substance: CLONAZEPAM
  10. CLONAZEPAM. [Concomitant]
     Active Substance: CLONAZEPAM
  11. FEXOFENADINE HCL [Concomitant]
     Active Substance: FEXOFENADINE HYDROCHLORIDE
  12. PROVIGIL [Concomitant]
     Active Substance: MODAFINIL

REACTIONS (3)
  - Abdominal discomfort [Unknown]
  - Wrong technique in product usage process [Unknown]
  - Discomfort [Unknown]
